FAERS Safety Report 8728539 (Version 2)
Quarter: 2012Q4

REPORT INFORMATION
  Report Type: 
  Country: US (occurrence: US)
  Receive Date: 20120817
  Receipt Date: 20120911
  Transmission Date: 20130627
  Serious: No
  Sender: FDA-Public Use
  Company Number: US-TEVA-353821USA

PATIENT
  Sex: Male

DRUGS (1)
  1. PROAIR HFA [Suspect]
     Dosage: every 3-4 hours

REACTIONS (2)
  - Drug effect decreased [Not Recovered/Not Resolved]
  - Incorrect storage of drug [Unknown]
